FAERS Safety Report 4560038-0 (Version None)
Quarter: 2005Q1

REPORT INFORMATION
  Report Type: 
  Country: None (occurrence: None)
  Receive Date: 20050125
  Receipt Date: 20050113
  Transmission Date: 20050727
  Serious: Yes (Other)
  Sender: FDA-Public Use
  Company Number: US-JNJFOC-20050103600

PATIENT
  Sex: Female

DRUGS (14)
  1. INFLIXIMAB [Suspect]
     Indication: RHEUMATOID ARTHRITIS
     Route: 042
  2. ACCUPRIL [Concomitant]
  3. AMBIEN [Concomitant]
  4. ATIVAN [Concomitant]
  5. DETROL [Concomitant]
  6. FOLIC ACID [Concomitant]
  7. FOSAMAX [Concomitant]
  8. METHOTREXATE [Concomitant]
  9. PLAQUENIL [Concomitant]
  10. PREMARIN [Concomitant]
  11. PROZAC [Concomitant]
  12. SALSALATE [Concomitant]
  13. VICODIN [Concomitant]
  14. VICODIN [Concomitant]
     Dosage: 2 TABLETS DAILY

REACTIONS (2)
  - INFUSION RELATED REACTION [None]
  - MUSCLE SPASMS [None]
